FAERS Safety Report 20683138 (Version 1)
Quarter: 2022Q2

REPORT INFORMATION
  Report Type: Report from Study
  Country: US (occurrence: US)
  Receive Date: 20220407
  Receipt Date: 20220407
  Transmission Date: 20220720
  Serious: Yes (Disabling, Other)
  Sender: FDA-Public Use
  Company Number: US-GILEAD-2022-0576344

PATIENT
  Age: 23 Year
  Sex: Male

DRUGS (2)
  1. EFAVIRENZ\EMTRICITABINE\TENOFOVIR DISOPROXIL FUMARATE [Suspect]
     Active Substance: EFAVIRENZ\EMTRICITABINE\TENOFOVIR DISOPROXIL FUMARATE
     Indication: HIV infection
     Route: 065
  2. COBICISTAT\ELVITEGRAVIR\EMTRICITABINE\TENOFOVIR [Suspect]
     Active Substance: COBICISTAT\ELVITEGRAVIR\EMTRICITABINE\TENOFOVIR
     Indication: HIV infection
     Route: 065

REACTIONS (7)
  - Illness [Recovered/Resolved]
  - Motion sickness [Recovered/Resolved]
  - Feeling abnormal [Recovered/Resolved]
  - Staphylococcal infection [Recovered/Resolved]
  - Nausea [Recovered/Resolved]
  - Blood HIV RNA increased [Recovered/Resolved]
  - Drug ineffective [Recovered/Resolved]
